FAERS Safety Report 13923817 (Version 1)
Quarter: 2017Q3

REPORT INFORMATION
  Report Type: Spontaneous
  Country: US (occurrence: None)
  Receive Date: 20170830
  Receipt Date: 20170830
  Transmission Date: 20171127
  Serious: Yes (Hospitalization)
  Sender: FDA-Public Use
  Company Number: None

PATIENT
  Age: 56 Year
  Sex: Male
  Weight: 93 kg

DRUGS (1)
  1. ISONIAZID. [Suspect]
     Active Substance: ISONIAZID
     Indication: LATENT TUBERCULOSIS
     Route: 048
     Dates: start: 20170214, end: 20170821

REACTIONS (7)
  - Hepatic cirrhosis [None]
  - Ascites [None]
  - Abdominal distension [None]
  - Chills [None]
  - Decreased appetite [None]
  - Diarrhoea [None]
  - Feeling cold [None]

NARRATIVE: CASE EVENT DATE: 20170821
